FAERS Safety Report 9683467 (Version 1)
Quarter: 2013Q4

REPORT INFORMATION
  Report Type: Spontaneous
  Country: GB (occurrence: GB)
  Receive Date: 20131112
  Receipt Date: 20131112
  Transmission Date: 20140711
  Serious: Yes (Hospitalization)
  Sender: FDA-Public Use
  Company Number: GB-EISAI INC-E2007-01387-SPO-GB

PATIENT
  Sex: Female

DRUGS (3)
  1. FYCOMPA (PERAMPANEL) [Suspect]
     Indication: PRODUCT USED FOR UNKNOWN INDICATION
     Dosage: 8 MG
     Route: 065
  2. FYCOMPA (PERAMPANEL) [Suspect]
     Dosage: 6 MG/DAY
     Route: 065
  3. PHENYTOIN [Concomitant]
     Indication: PRODUCT USED FOR UNKNOWN INDICATION
     Dosage: UNKNOWN
     Route: 065

REACTIONS (1)
  - Convulsion [Unknown]
